FAERS Safety Report 8026354-5 (Version None)
Quarter: 2012Q1

REPORT INFORMATION
  Report Type: 
  Country: None (occurrence: None)
  Receive Date: 20120105
  Receipt Date: 20111109
  Transmission Date: 20120608
  Serious: No
  Sender: FDA-Public Use
  Company Number: US-ABBOTT-11P-163-0869302-00

PATIENT
  Sex: Female
  Weight: 55.842 kg

DRUGS (5)
  1. SYNTHROID [Suspect]
  2. LOSARTAN POTASSIUM [Concomitant]
     Indication: BLOOD PRESSURE
  3. SYNTHROID [Suspect]
     Dates: start: 20090101
  4. SYNTHROID [Suspect]
     Dates: end: 20110401
  5. SYNTHROID [Suspect]
     Indication: HYPOTHYROIDISM
     Dates: start: 20110401

REACTIONS (9)
  - FEELING ABNORMAL [None]
  - PALPITATIONS [None]
  - INSOMNIA [None]
  - DRUG INEFFECTIVE [None]
  - HEART RATE INCREASED [None]
  - ANXIETY [None]
  - BLOOD PRESSURE INCREASED [None]
  - PRODUCT TAMPERING [None]
  - PRODUCT CONTAMINATION [None]
